FAERS Safety Report 11388394 (Version 1)
Quarter: 2015Q3

REPORT INFORMATION
  Report Type: Spontaneous
  Country: US (occurrence: US)
  Receive Date: 20150817
  Receipt Date: 20150817
  Transmission Date: 20151125
  Serious: Yes (Other)
  Sender: FDA-Public Use
  Company Number: US-TEVA-585656USA

PATIENT
  Sex: Male
  Weight: 53.57 kg

DRUGS (1)
  1. AZILECT [Suspect]
     Active Substance: RASAGILINE MESYLATE
     Indication: PARKINSON^S DISEASE

REACTIONS (2)
  - Weight decreased [Unknown]
  - Lymphoma [Unknown]

NARRATIVE: CASE EVENT DATE: 201508
